FAERS Safety Report 7778930-2 (Version None)
Quarter: 2011Q3

REPORT INFORMATION
  Report Type: 
  Country: None (occurrence: None)
  Receive Date: 20110926
  Receipt Date: 20110921
  Transmission Date: 20111222
  Serious: No
  Sender: FDA-Public Use
  Company Number: US-BAYER-2011-090168

PATIENT
  Age: 15 Year

DRUGS (1)
  1. AVELOX [Suspect]
     Dosage: 10 MG/KG, UNK
     Route: 042

REACTIONS (1)
  - NO ADVERSE EVENT [None]
